FAERS Safety Report 7979998-0 (Version None)
Quarter: 2011Q4

REPORT INFORMATION
  Report Type: 
  Country: None (occurrence: None)
  Receive Date: 20111214
  Receipt Date: 20111206
  Transmission Date: 20120403
  Serious: Yes (Hospitalization)
  Sender: FDA-Public Use
  Company Number: US-ROCHE-1019487

PATIENT
  Sex: Male

DRUGS (2)
  1. ISOTRETINOIN [Suspect]
     Route: 065
     Dates: start: 20070101
  2. ISOTRETINOIN [Suspect]
     Indication: PRODUCT USED FOR UNKNOWN INDICATION
     Route: 065
     Dates: start: 20010101

REACTIONS (3)
  - GASTROINTESTINAL DISORDER [None]
  - DIARRHOEA [None]
  - ABDOMINAL PAIN [None]
